FAERS Safety Report 23076831 (Version 9)
Quarter: 2025Q2

REPORT INFORMATION
  Report Type: Report from Study
  Country: US (occurrence: US)
  Receive Date: 20231018
  Receipt Date: 20250421
  Transmission Date: 20250717
  Serious: Yes (Other)
  Sender: NOVARTIS
  Company Number: US-002147023-NVSC2023US222064

PATIENT
  Sex: Female

DRUGS (1)
  1. KESIMPTA [Suspect]
     Active Substance: OFATUMUMAB
     Indication: Product used for unknown indication
     Dosage: 20 MG, QMO
     Route: 058
     Dates: start: 20230706

REACTIONS (17)
  - Loss of consciousness [Unknown]
  - Multiple sclerosis [Unknown]
  - Lymphadenopathy [Unknown]
  - Fatigue [Unknown]
  - Insomnia [Unknown]
  - Pain [Unknown]
  - Nasopharyngitis [Unknown]
  - Throat irritation [Unknown]
  - Oropharyngeal pain [Unknown]
  - Productive cough [Unknown]
  - Muscle spasms [Unknown]
  - Musculoskeletal stiffness [Unknown]
  - Sciatica [Unknown]
  - Gait disturbance [Recovering/Resolving]
  - Dysphagia [Unknown]
  - Ligament sprain [Recovering/Resolving]
  - Visual impairment [Unknown]
